FAERS Safety Report 19379707 (Version 4)
Quarter: 2022Q2

REPORT INFORMATION
  Report Type: Report from Study
  Country: ES (occurrence: None)
  Receive Date: 20210607
  Receipt Date: 20220609
  Transmission Date: 20220721
  Serious: Yes (Hospitalization)
  Sender: FDA-Public Use
  Company Number: ES-ROCHE-2842333

PATIENT
  Age: 48 Year
  Sex: Female
  Weight: 96.6 kg

DRUGS (13)
  1. ADO-TRASTUZUMAB EMTANSINE [Suspect]
     Active Substance: ADO-TRASTUZUMAB EMTANSINE
     Indication: Breast cancer metastatic
     Dosage: DAY 1 OF 21 DAY CYCLE.
     Route: 042
     Dates: start: 20210406, end: 20210520
  2. TUCATINIB [Suspect]
     Active Substance: TUCATINIB
     Indication: Breast cancer metastatic
     Route: 048
     Dates: start: 20210406, end: 20210526
  3. AMERIDE (SPAIN) [Concomitant]
  4. ACETAMINOPHEN [Concomitant]
     Active Substance: ACETAMINOPHEN
     Dates: start: 20210522
  5. DEXKETOPROFEN TROMETAMOL [Concomitant]
     Active Substance: DEXKETOPROFEN TROMETAMOL
     Dates: start: 20210522
  6. ZOLPIDEM [Concomitant]
     Active Substance: ZOLPIDEM TARTRATE
     Dates: start: 202103
  7. ONDANSETRON [Concomitant]
     Active Substance: ONDANSETRON
     Dates: start: 20210501, end: 20210516
  8. TAXOTERE [Concomitant]
     Active Substance: DOCETAXEL
  9. CARBOPLATIN [Concomitant]
     Active Substance: CARBOPLATIN
  10. TRASTUZUMAB [Concomitant]
     Active Substance: TRASTUZUMAB
     Route: 065
     Dates: start: 20210225
  11. TRASTUZUMAB [Concomitant]
     Active Substance: TRASTUZUMAB
     Dates: end: 20201216
  12. PERTUZUMAB [Concomitant]
     Active Substance: PERTUZUMAB
     Dates: end: 20201216
  13. CAPECITABINE [Concomitant]
     Active Substance: CAPECITABINE
     Route: 048
     Dates: start: 20210226, end: 20210312

REACTIONS (6)
  - Nausea [Recovered/Resolved]
  - Headache [Recovered/Resolved]
  - Arthralgia [Recovered/Resolved]
  - Pyrexia [Recovered/Resolved]
  - Oral candidiasis [Recovered/Resolved]
  - Rectal haemorrhage [Recovered/Resolved]

NARRATIVE: CASE EVENT DATE: 20210526
